FAERS Safety Report 4440824-8 (Version None)
Quarter: 2004Q3

REPORT INFORMATION
  Report Type: 
  Country: None (occurrence: None)
  Receive Date: 20040903
  Receipt Date: 20040902
  Transmission Date: 20050211
  Serious: Yes (Other)
  Sender: FDA-Public Use
  Company Number: US-GLAXOSMITHKLINE-A0524508A

PATIENT

DRUGS (2)
  1. AVANDIA [Suspect]
     Indication: ILL-DEFINED DISORDER
     Route: 048
  2. METFORMIN HCL [Concomitant]

REACTIONS (1)
  - INAPPROPRIATE ANTIDIURETIC HORMONE SECRETION [None]
